FAERS Safety Report 6756711-6 (Version None)
Quarter: 2010Q2

REPORT INFORMATION
  Report Type: 
  Country: None (occurrence: None)
  Receive Date: 20100604
  Receipt Date: 20100521
  Transmission Date: 20101027
  Serious: Yes (Other)
  Sender: FDA-Public Use
  Company Number: US-ELI_LILLY_AND_COMPANY-US201004002932

PATIENT
  Sex: Female
  Weight: 51.701 kg

DRUGS (11)
  1. FORTEO [Suspect]
     Indication: OSTEOPOROSIS
     Dosage: 20 UG, DAILY (1/D)
     Route: 058
     Dates: start: 20080401, end: 20100426
  2. FOSAMAX [Concomitant]
     Dosage: 70 MG, WEEKLY (1/W)
     Route: 048
     Dates: start: 20100426
  3. CALTRATE + D /00944201/ [Concomitant]
  4. VITAMIN D [Concomitant]
     Dosage: 50000 U, WEEKLY (1/W)
  5. PRILOSEC [Concomitant]
     Dosage: 20 MG, UNK
  6. METFORMIN [Concomitant]
     Dosage: 1000 MG, DAILY (1/D)
  7. ULTRACET [Concomitant]
     Dosage: UNK, AS NEEDED
  8. PROTONIX [Concomitant]
     Dosage: 40 MG, DAILY (1/D)
  9. DIOVAN HCT [Concomitant]
     Dosage: UNK, DAILY (1/D)
  10. ECOTRIN [Concomitant]
     Dosage: 81 MG, DAILY (1/D)
  11. GLUCOSAMINE SULFATE W/CHONDROITIN [Concomitant]
     Dosage: 500 MG, 2/D

REACTIONS (1)
  - TRANSIENT ISCHAEMIC ATTACK [None]
